FAERS Safety Report 13177214 (Version 1)
Quarter: 2017Q1

REPORT INFORMATION
  Report Type: Report from Study
  Country: US (occurrence: US)
  Receive Date: 20170201
  Receipt Date: 20170201
  Transmission Date: 20170428
  Serious: No
  Sender: FDA-Public Use
  Company Number: US-EXELIXIS-CABO-16007444

PATIENT
  Age: 81 Year
  Sex: Male

DRUGS (7)
  1. PLAQUENIL [Concomitant]
     Active Substance: HYDROXYCHLOROQUINE SULFATE
  2. COMETRIQ [Suspect]
     Active Substance: CABOZANTINIB S-MALATE
     Indication: THYROID CANCER
     Dosage: 140 MG, QD
     Route: 048
     Dates: start: 20161025, end: 201611
  3. METHOTREXATE. [Concomitant]
     Active Substance: METHOTREXATE
  4. ASPIRIN. [Concomitant]
     Active Substance: ASPIRIN
  5. FOLIC ACID. [Concomitant]
     Active Substance: FOLIC ACID
  6. VOLTAREN [Concomitant]
     Active Substance: DICLOFENAC SODIUM
  7. COMETRIQ [Suspect]
     Active Substance: CABOZANTINIB S-MALATE
     Dosage: 80 MG, QD
     Route: 048
     Dates: start: 201611

REACTIONS (9)
  - Confusional state [Not Recovered/Not Resolved]
  - Pharyngeal disorder [Unknown]
  - Fatigue [Recovering/Resolving]
  - Fear [Unknown]
  - Disorientation [Unknown]
  - Asthenia [Unknown]
  - Dysphonia [Unknown]
  - Hyperhidrosis [Unknown]
  - Choking [Unknown]

NARRATIVE: CASE EVENT DATE: 20161025
